FAERS Safety Report 5309124-8 (Version None)
Quarter: 2007Q2

REPORT INFORMATION
  Report Type: 
  Country: None (occurrence: None)
  Receive Date: 20070420
  Receipt Date: 20070329
  Transmission Date: 20071010
  Serious: Yes (Life-Threatening)
  Sender: FDA-Public Use
  Company Number: 070303162

PATIENT
  Age: 26 Year
  Sex: Female
  Weight: 56.6996 kg

DRUGS (3)
  1. DELSYM [Suspect]
     Indication: UPPER RESPIRATORY TRACT INFECTION
     Dosage: 2TBSP, 1 DOSE, ORAL
     Route: 048
     Dates: start: 20070224, end: 20070224
  2. NASONEX [Concomitant]
  3. TYLENOL (CAPLET) [Concomitant]

REACTIONS (5)
  - EOSINOPHIL PERCENTAGE INCREASED [None]
  - PRURITUS [None]
  - SWELLING FACE [None]
  - THROAT IRRITATION [None]
  - THROAT TIGHTNESS [None]
